FAERS Safety Report 5562673-X (Version None)
Quarter: 2007Q4

REPORT INFORMATION
  Report Type: 
  Country: None (occurrence: None)
  Receive Date: 20071211
  Receipt Date: 20071211
  Transmission Date: 20080405
  Serious: Yes (Other)
  Sender: FDA-Public Use
  Company Number: None

PATIENT
  Age: 55 Year
  Sex: Female
  Weight: 77.1115 kg

DRUGS (2)
  1. CHANTIX [Suspect]
     Indication: SMOKING CESSATION THERAPY
     Dosage: ONE PILL TWICE DAILY PO
     Route: 048
     Dates: start: 20071001, end: 20071206
  2. CHANTIX [Suspect]
     Indication: SMOKING CESSATION THERAPY
     Dosage: ONE PILL TWICE DAILY PO
     Route: 048
     Dates: start: 20071020

REACTIONS (10)
  - AGGRESSION [None]
  - CONSTIPATION [None]
  - CRYING [None]
  - DEPRESSION [None]
  - FEAR [None]
  - HEADACHE [None]
  - MARITAL PROBLEM [None]
  - MOOD ALTERED [None]
  - NIGHTMARE [None]
  - SOCIAL AVOIDANT BEHAVIOUR [None]
